FAERS Safety Report 7481361-6 (Version None)
Quarter: 2011Q2

REPORT INFORMATION
  Report Type: 
  Country: None (occurrence: None)
  Receive Date: 20110516
  Receipt Date: 20110506
  Transmission Date: 20111010
  Serious: Yes (Other)
  Sender: FDA-Public Use
  Company Number: US-ASTRAZENECA-2011SE27270

PATIENT
  Sex: Male

DRUGS (2)
  1. ATACAND [Suspect]
     Route: 048
  2. CRESTOR [Suspect]
     Route: 048

REACTIONS (1)
  - HEMIPLEGIA [None]
